FAERS Safety Report 5453301-2 (Version None)
Quarter: 2007Q3

REPORT INFORMATION
  Report Type: 
  Country: None (occurrence: None)
  Receive Date: 20070914
  Receipt Date: 20070904
  Transmission Date: 20080115
  Serious: Yes (Death)
  Sender: FDA-Public Use
  Company Number: US-ABBOTT-07P-163-0370632-00

PATIENT
  Sex: Female
  Weight: 73.548 kg

DRUGS (10)
  1. SYNTHROID [Suspect]
     Indication: HYPOTHYROIDISM
     Route: 048
     Dates: start: 19930101
  2. SERTRALINE [Concomitant]
     Indication: DEPRESSION
     Route: 048
     Dates: start: 20070213, end: 20070524
  3. PANTOPRAZOLE SODIUM [Concomitant]
     Indication: GASTROOESOPHAGEAL REFLUX DISEASE
     Route: 048
     Dates: start: 20070313, end: 20070524
  4. FLUTICASONE PROPIONATE [Concomitant]
     Indication: HYPERSENSITIVITY
     Route: 055
  5. ZITHROMAX [Concomitant]
     Indication: UPPER RESPIRATORY TRACT INFECTION
     Route: 048
     Dates: start: 20070213, end: 20070213
  6. ZITHROMAX [Concomitant]
     Route: 048
     Dates: start: 20070214, end: 20070219
  7. CRYSTALLINE VIT B12 INJ [Concomitant]
     Indication: ALCOHOLISM
     Dates: start: 20070410, end: 20070410
  8. MULTIVIT [Concomitant]
     Indication: ANAEMIA
     Dates: start: 20070213, end: 20070524
  9. IRON [Concomitant]
     Indication: ANAEMIA
     Dates: start: 20070213, end: 20070524
  10. CALCIUM [Concomitant]
     Indication: POSTMENOPAUSE
     Dates: start: 20070213, end: 20070524

REACTIONS (4)
  - CHILLS [None]
  - COUGH [None]
  - PYREXIA [None]
  - VIRAL INFECTION [None]
